APPROVED DRUG PRODUCT: BUDESONIDE
Active Ingredient: BUDESONIDE
Strength: 0.5MG/2ML
Dosage Form/Route: SUSPENSION;INHALATION
Application: A201966 | Product #002
Applicant: SANDOZ INC
Approved: Sep 27, 2013 | RLD: No | RS: No | Type: DISCN